FAERS Safety Report 5578731-X (Version None)
Quarter: 2007Q4

REPORT INFORMATION
  Report Type: 
  Country: None (occurrence: None)
  Receive Date: 20071221
  Receipt Date: 20071212
  Transmission Date: 20080405
  Serious: Yes (Death)
  Sender: FDA-Public Use
  Company Number: 2007337782

PATIENT
  Age: 62 Year
  Sex: Male

DRUGS (1)
  1. SUDAFED S.A. [Suspect]
     Dosage: UNSPECIFIED, ORAL
     Route: 048

REACTIONS (2)
  - DRUG TOXICITY [None]
  - PERICARDITIS CONSTRICTIVE [None]
